FAERS Safety Report 10696058 (Version 1)
Quarter: 2015Q1

REPORT INFORMATION
  Report Type: Spontaneous
  Country: CN (occurrence: CN)
  Receive Date: 20150107
  Receipt Date: 20150107
  Transmission Date: 20150721
  Serious: Yes (Other)
  Sender: FDA-Public Use
  Company Number: CN-BAYER-2015-001135

PATIENT
  Age: 88 Year
  Sex: Female

DRUGS (2)
  1. GLUCOBAY [Suspect]
     Active Substance: ACARBOSE
     Dosage: 2 DF, TID
  2. GLUCOBAY [Suspect]
     Active Substance: ACARBOSE
     Dosage: 1 DF, TID

REACTIONS (2)
  - Diabetes mellitus inadequate control [None]
  - Incorrect dose administered [None]
